FAERS Safety Report 9258475 (Version 1)
Quarter: 2013Q2

REPORT INFORMATION
  Report Type: Spontaneous
  Country: GB (occurrence: GB)
  Receive Date: 20130426
  Receipt Date: 20130426
  Transmission Date: 20140414
  Serious: Yes (Other)
  Sender: FDA-Public Use
  Company Number: PHFR2013GB001841

PATIENT
  Age: 35 Year
  Sex: Male
  Weight: 106 kg

DRUGS (10)
  1. CLOZARIL [Suspect]
     Dosage: UNK
     Route: 048
     Dates: start: 20130308
  2. CLOZARIL [Suspect]
     Dosage: 150 MG, UNK
     Route: 048
     Dates: start: 20130322
  3. FLUOXETINE [Suspect]
     Indication: DEPRESSED MOOD
     Dosage: 20 MG, UNK
     Route: 048
  4. FLUOXETINE [Suspect]
     Dosage: UNK UKN, REDUCED DOSE
     Dates: end: 20130326
  5. QUETIAPINE [Concomitant]
     Indication: SCHIZOPHRENIA
     Dosage: 800 MG, UNK
     Route: 048
  6. SODIUM VALPROATE [Concomitant]
     Indication: MOOD ALTERED
     Dosage: 1 G, UNK
     Route: 048
  7. SIMVASTATIN [Concomitant]
     Indication: BLOOD CHOLESTEROL INCREASED
     Dosage: 10 MG, UNK
     Route: 048
  8. ZOPICLONE [Concomitant]
     Dosage: UNK UKN, UNK
  9. MAALOX                                  /NET/ [Concomitant]
     Dosage: UNK UKN, UNK
  10. HYOSCINE [Concomitant]
     Dosage: 300 UG, MANE

REACTIONS (2)
  - Salivary hypersecretion [Unknown]
  - Antipsychotic drug level decreased [Unknown]
